FAERS Safety Report 5815651-7 (Version None)
Quarter: 2008Q3

REPORT INFORMATION
  Report Type: 
  Country: None (occurrence: None)
  Receive Date: 20080716
  Receipt Date: 20080702
  Transmission Date: 20090109
  Serious: Yes (Death, Hospitalization)
  Sender: FDA-Public Use
  Company Number: 2007BI021411

PATIENT
  Sex: Female

DRUGS (1)
  1. AVONEX [Suspect]
     Indication: MULTIPLE SCLEROSIS
     Dosage: 30 UG; QW; IM
     Route: 030
     Dates: start: 20041220

REACTIONS (5)
  - ACUTE MYOCARDIAL INFARCTION [None]
  - BACK PAIN [None]
  - CARDIAC ARREST [None]
  - ISCHAEMIC CARDIOMYOPATHY [None]
  - VENTRICULAR ARRHYTHMIA [None]
